FAERS Safety Report 4979725-5 (Version None)
Quarter: 2006Q2

REPORT INFORMATION
  Report Type: 
  Country: None (occurrence: None)
  Receive Date: 20060418
  Receipt Date: 20060405
  Transmission Date: 20061013
  Serious: Yes (Hospitalization)
  Sender: FDA-Public Use
  Company Number: 2006048490

PATIENT
  Sex: Female

DRUGS (1)
  1. SILDENAFIL CITRATE [Suspect]
     Indication: ILL-DEFINED DISORDER
     Dosage: 150 MG (DAILY INTERVAL:  EVERYDAY), ORAL
     Route: 048

REACTIONS (1)
  - RIGHT VENTRICULAR FAILURE [None]
